FAERS Safety Report 25902822 (Version 1)
Quarter: 2025Q4

REPORT INFORMATION
  Report Type: Spontaneous
  Country: US (occurrence: US)
  Receive Date: 20251009
  Receipt Date: 20251009
  Transmission Date: 20260117
  Serious: No
  Sender: MYLAN
  Company Number: US-MYLANLABS-2025M1081719

PATIENT
  Sex: Female
  Weight: 113.4 kg

DRUGS (1)
  1. ESTRADIOL TRANSDERMAL SYSTEM [Suspect]
     Active Substance: ESTRADIOL
     Indication: Menopausal symptoms
     Dosage: 0.075 MILLIGRAM, QD (PER DAY, TWICE WEEKLY)

REACTIONS (2)
  - Product adhesion issue [Unknown]
  - Product substitution issue [Unknown]
